FAERS Safety Report 7938616-8 (Version None)
Quarter: 2011Q4

REPORT INFORMATION
  Report Type: 
  Country: None (occurrence: None)
  Receive Date: 20111123
  Receipt Date: 20111110
  Transmission Date: 20120403
  Serious: Yes (Death)
  Sender: FDA-Public Use
  Company Number: US-WATSON-2011-19700

PATIENT
  Sex: Female

DRUGS (1)
  1. FOLIC ACID (WATSON LABORATORIES) [Suspect]
     Indication: SUPPLEMENTATION THERAPY

REACTIONS (1)
  - DEATH [None]
